FAERS Safety Report 5133775-7 (Version None)
Quarter: 2006Q4

REPORT INFORMATION
  Report Type: 
  Country: None (occurrence: None)
  Receive Date: 20061024
  Receipt Date: 20061013
  Transmission Date: 20070319
  Serious: Yes (Hospitalization)
  Sender: FDA-Public Use
  Company Number: IN-JNJFOC-20061003181

PATIENT
  Age: 65 Year
  Sex: Female
  Weight: 92 kg

DRUGS (1)
  1. ULTRACET [Suspect]
     Indication: PAIN
     Route: 065

REACTIONS (2)
  - DISORIENTATION [None]
  - ELECTROLYTE IMBALANCE [None]
